FAERS Safety Report 16451412 (Version 1)
Quarter: 2019Q2

REPORT INFORMATION
  Report Type: Spontaneous
  Country: JP (occurrence: JP)
  Receive Date: 20190619
  Receipt Date: 20190619
  Transmission Date: 20190711
  Serious: Yes (Other)
  Sender: FDA-Public Use
  Company Number: JP-BAYER-2019-112339

PATIENT
  Age: 7 Decade
  Sex: Male

DRUGS (3)
  1. XOFIGO [Suspect]
     Active Substance: RADIUM RA-223 DICHLORIDE
     Indication: METASTASES TO BONE
  2. ENZALUTAMIDE [Concomitant]
     Active Substance: ENZALUTAMIDE
  3. XOFIGO [Suspect]
     Active Substance: RADIUM RA-223 DICHLORIDE
     Indication: HORMONE-REFRACTORY PROSTATE CANCER
     Dosage: 55KBQ/KG, Q1MON
     Route: 042
     Dates: start: 20180608

REACTIONS (1)
  - Hormone-refractory prostate cancer [Not Recovered/Not Resolved]

NARRATIVE: CASE EVENT DATE: 20180608
